FAERS Safety Report 5942375-8 (Version None)
Quarter: 2008Q4

REPORT INFORMATION
  Report Type: 
  Country: None (occurrence: None)
  Receive Date: 20081105
  Receipt Date: 20081029
  Transmission Date: 20090506
  Serious: No
  Sender: FDA-Public Use
  Company Number: US-B.I. PHARMACEUTICALS,INC./RIDGEFIELD-2008-BP-14351BP

PATIENT
  Sex: Female

DRUGS (10)
  1. SPIRIVA [Suspect]
     Indication: CHRONIC OBSTRUCTIVE PULMONARY DISEASE
     Dosage: 18MCG
     Route: 055
     Dates: start: 20040101
  2. CYMBALTA [Concomitant]
  3. ZOCOR [Concomitant]
  4. SINGULAIR [Concomitant]
  5. FEMARA [Concomitant]
  6. HYDROCHLOROL [Concomitant]
  7. LISINOPRIL [Concomitant]
  8. NEXIUM [Concomitant]
  9. POTASSIUM CAL [Concomitant]
  10. UNIPHYL [Concomitant]

REACTIONS (1)
  - DYSPNOEA [None]
